FAERS Safety Report 9435730 (Version 2)
Quarter: 2013Q3

REPORT INFORMATION
  Report Type: Spontaneous
  Country: US (occurrence: US)
  Receive Date: 20130801
  Receipt Date: 20130924
  Transmission Date: 20140515
  Serious: Yes (Death)
  Sender: FDA-Public Use
  Company Number: US-MPIJNJ-2013-05785

PATIENT
  Age: 82 Year
  Sex: Female

DRUGS (1)
  1. VELCADE [Suspect]
     Indication: WALDENSTROM^S MACROGLOBULINAEMIA
     Dosage: UNK
     Route: 042
     Dates: start: 20130617, end: 20130715

REACTIONS (3)
  - Metabolic encephalopathy [Fatal]
  - Pancytopenia [Fatal]
  - Off label use [Unknown]
